FAERS Safety Report 7175883-5 (Version None)
Quarter: 2010Q4

REPORT INFORMATION
  Report Type: 
  Country: None (occurrence: None)
  Receive Date: 20101220
  Receipt Date: 20100501
  Transmission Date: 20110411
  Serious: No
  Sender: FDA-Public Use
  Company Number: US-AMGEN-TCS403790

PATIENT

DRUGS (4)
  1. ENBREL [Suspect]
     Indication: RHEUMATOID ARTHRITIS
     Dosage: 50 MG, QWK
     Route: 058
     Dates: start: 20090123, end: 20100405
  2. LEFLUNOMIDE [Concomitant]
     Dosage: 10 MG, QD
  3. LISINOPRIL [Concomitant]
  4. PREDNISONE [Concomitant]

REACTIONS (6)
  - ANXIETY [None]
  - DIZZINESS [None]
  - EYE PAIN [None]
  - HYPERVENTILATION [None]
  - PARAESTHESIA [None]
  - SINUSITIS [None]
